FAERS Safety Report 7470629-5 (Version None)
Quarter: 2011Q2

REPORT INFORMATION
  Report Type: 
  Country: None (occurrence: None)
  Receive Date: 20110510
  Receipt Date: 20100430
  Transmission Date: 20111010
  Serious: No
  Sender: FDA-Public Use
  Company Number: US-ALEXION-A201000496

PATIENT

DRUGS (1)
  1. SOLIRIS [Suspect]
     Dosage: UNK
     Route: 042
     Dates: start: 20100430

REACTIONS (1)
  - INFUSION SITE EXTRAVASATION [None]
